FAERS Safety Report 19684285 (Version 1)
Quarter: 2021Q3

REPORT INFORMATION
  Report Type: Spontaneous
  Country: US (occurrence: US)
  Receive Date: 20210810
  Receipt Date: 20210810
  Transmission Date: 20211014
  Serious: No
  Sender: FDA-Public Use
  Company Number: None

PATIENT
  Age: 91 Year
  Sex: Female
  Weight: 66.4 kg

DRUGS (10)
  1. VITAMIN D3 [Concomitant]
     Active Substance: CHOLECALCIFEROL
  2. TYLENOL [Concomitant]
     Active Substance: ACETAMINOPHEN
  3. VITMAIN B?12 [Concomitant]
  4. DULOXETINE. [Concomitant]
     Active Substance: DULOXETINE
  5. LASIX [Concomitant]
     Active Substance: FUROSEMIDE
  6. CLARITIN D 24 HOUR [Concomitant]
  7. MECLIZINE [Concomitant]
     Active Substance: MECLIZINE HYDROCHLORIDE
  8. TABRECTA [Suspect]
     Active Substance: CAPMATINIB
     Indication: LUNG NEOPLASM MALIGNANT
     Route: 048
     Dates: start: 20201223
  9. FLONASE [Concomitant]
     Active Substance: FLUTICASONE PROPIONATE
  10. METHENAMINE [Concomitant]
     Active Substance: METHENAMINE

REACTIONS (2)
  - Thrombosis [None]
  - Peripheral swelling [None]

NARRATIVE: CASE EVENT DATE: 20210810
